FAERS Safety Report 5023603-2 (Version None)
Quarter: 2006Q2

REPORT INFORMATION
  Report Type: 
  Country: None (occurrence: None)
  Receive Date: 20060606
  Receipt Date: 20060525
  Transmission Date: 20061013
  Serious: Yes (Other)
  Sender: FDA-Public Use
  Company Number: HQ8070130JUN2000

PATIENT
  Age: 40 Year
  Sex: Female

DRUGS (1)
  1. PREMARIN [Suspect]
     Indication: CYSTITIS HAEMORRHAGIC
     Dosage: 4 MG 3X PER 1 DAY
     Route: 048

REACTIONS (2)
  - HEPATIC STEATOSIS [None]
  - HEPATOTOXICITY [None]
